FAERS Safety Report 4533798-2 (Version None)
Quarter: 2004Q4

REPORT INFORMATION
  Report Type: 
  Country: None (occurrence: None)
  Receive Date: 20041221
  Receipt Date: 20041208
  Transmission Date: 20050328
  Serious: Yes (Hospitalization)
  Sender: FDA-Public Use
  Company Number: GB-MERCK-0412GBR00084

PATIENT
  Age: 89 Year
  Sex: Female
  Weight: 52 kg

DRUGS (3)
  1. ZOCOR [Suspect]
     Indication: BLOOD CHOLESTEROL INCREASED
     Route: 048
     Dates: end: 20041112
  2. ASPIRIN [Concomitant]
     Route: 048
  3. AMILORIDE HYDROCHLORIDE AND FUROSEMIDE [Concomitant]
     Route: 048

REACTIONS (4)
  - DYSPNOEA [None]
  - HEPATITIS [None]
  - NAUSEA [None]
  - PAIN [None]
